FAERS Safety Report 4516833-7 (Version None)
Quarter: 2004Q4

REPORT INFORMATION
  Report Type: 
  Country: None (occurrence: None)
  Receive Date: 20041202
  Receipt Date: 20031007
  Transmission Date: 20050328
  Serious: Yes (Other)
  Sender: FDA-Public Use
  Company Number: GB-GLAXOSMITHKLINE-B0311029A

PATIENT
  Sex: Male

DRUGS (4)
  1. LAMOTRIGINE [Suspect]
     Indication: EPILEPSY
     Route: 048
     Dates: start: 20021201
  2. HYDROCORTISONE [Concomitant]
  3. DIAZEPAM [Concomitant]
     Indication: PANIC ATTACK
     Dosage: 5MG SEE DOSAGE TEXT
     Route: 048
  4. PROPRANOLOL [Concomitant]
     Indication: PANIC ATTACK
     Dosage: 10MGS THREE TIMES PER DAY
     Route: 048

REACTIONS (3)
  - SPERM COUNT DECREASED [None]
  - SPERMATOZOA ABNORMAL [None]
  - SPERMATOZOA PROGRESSIVE MOTILITY DECREASED [None]
